FAERS Safety Report 9828597 (Version 1)
Quarter: 2013Q4

REPORT INFORMATION
  Report Type: Spontaneous
  Country: US (occurrence: None)
  Receive Date: 20131120
  Receipt Date: 20131120
  Transmission Date: 20140711
  Serious: No
  Sender: FDA-Public Use
  Company Number: 1000048508

PATIENT
  Age: 66 Year
  Sex: Male

DRUGS (4)
  1. VIIBRYD [Suspect]
     Indication: DEPRESSION
     Dosage: 10 MG  (10 MG, 1 IN 1 D), ORAL
     Route: 048
     Dates: start: 20130905
  2. XANAX [Concomitant]
  3. SIMVASTATIN (SIMVASTATIN) (SIMVASTATIN) [Concomitant]
  4. LISINOPRIL (LISINOPRIL) (LISINOPRIL) [Concomitant]

REACTIONS (3)
  - Diarrhoea [None]
  - Nausea [None]
  - Insomnia [None]
